FAERS Safety Report 9787754 (Version 1)
Quarter: 2013Q4

REPORT INFORMATION
  Report Type: Spontaneous
  Country: US (occurrence: None)
  Receive Date: 20131227
  Receipt Date: 20131227
  Transmission Date: 20140711
  Serious: Yes (Other)
  Sender: FDA-Public Use
  Company Number: None

PATIENT
  Age: 57 Year
  Sex: Female
  Weight: 99.79 kg

DRUGS (5)
  1. PRILOSEC [Suspect]
     Indication: GASTROOESOPHAGEAL REFLUX DISEASE
     Dosage: STRENGTH: 20.6?QUANTITY: 1-2 PILLS DAILY?BY MOUTH
     Route: 048
     Dates: start: 200710, end: 201311
  2. SYNTHROID (124 MG) [Concomitant]
  3. MULTIVITAMIN [Concomitant]
  4. NIACIN [Concomitant]
  5. GLUCOSAMINE [Concomitant]

REACTIONS (2)
  - Fibula fracture [None]
  - Bone pain [None]
